FAERS Safety Report 4482517-7 (Version None)
Quarter: 2004Q4

REPORT INFORMATION
  Report Type: 
  Country: None (occurrence: None)
  Receive Date: 20041022
  Receipt Date: 20040915
  Transmission Date: 20050328
  Serious: Yes (Hospitalization)
  Sender: FDA-Public Use
  Company Number: PHBS2004NL12362

PATIENT
  Age: 53 Year
  Sex: Female

DRUGS (1)
  1. HYDROCHLOROTHIAZIDE,TRIAMTERENE [Suspect]
     Indication: HYPERTENSION

REACTIONS (24)
  - ACUTE RESPIRATORY DISTRESS SYNDROME [None]
  - BLOOD FIBRINOGEN DECREASED [None]
  - BLOOD LACTATE DEHYDROGENASE INCREASED [None]
  - BLOOD LACTIC ACID INCREASED [None]
  - C-REACTIVE PROTEIN INCREASED [None]
  - CHILLS [None]
  - COLD SWEAT [None]
  - CYANOSIS [None]
  - DIARRHOEA [None]
  - DIZZINESS [None]
  - DYSPNOEA [None]
  - FIBRIN D DIMER INCREASED [None]
  - HAEMOGLOBIN INCREASED [None]
  - HYPOTENSION [None]
  - LEUKOPENIA [None]
  - LUNG INFILTRATION [None]
  - NAUSEA [None]
  - OXYGEN SATURATION DECREASED [None]
  - PRODUCTIVE COUGH [None]
  - PULMONARY OEDEMA [None]
  - RHONCHI [None]
  - SINUS TACHYCARDIA [None]
  - TACHYPNOEA [None]
  - VENTRICULAR HYPERTROPHY [None]
